FAERS Safety Report 7891883-1 (Version None)
Quarter: 2011Q4

REPORT INFORMATION
  Report Type: 
  Country: None (occurrence: None)
  Receive Date: 20111103
  Receipt Date: 20110811
  Transmission Date: 20120403
  Serious: No
  Sender: FDA-Public Use
  Company Number: US-AMGEN-USASP2011040913

PATIENT
  Sex: Female

DRUGS (5)
  1. MILK THISTLE [Concomitant]
     Dosage: UNK
  2. ENBREL [Suspect]
     Indication: PSORIATIC ARTHROPATHY
     Dosage: 50 MG, QWK
     Route: 058
     Dates: start: 20040101
  3. METHOTREXATE [Concomitant]
     Dosage: 2.5 MG, UNK
  4. XANAX [Concomitant]
     Dosage: 0.25 MG, UNK
  5. OXYCODONE HCL [Concomitant]
     Dosage: 5 MG, UNK

REACTIONS (1)
  - THERAPEUTIC RESPONSE DECREASED [None]
